FAERS Safety Report 17305125 (Version 1)
Quarter: 2020Q1

REPORT INFORMATION
  Report Type: Spontaneous
  Country: US (occurrence: US)
  Receive Date: 20200123
  Receipt Date: 20200123
  Transmission Date: 20200409
  Serious: No
  Sender: FDA-Public Use
  Company Number: US-MYLANLABS-2020M1004219

PATIENT
  Sex: Male
  Weight: 116 kg

DRUGS (1)
  1. METOPROLOL. [Suspect]
     Active Substance: METOPROLOL
     Indication: HYPERTENSION
     Dosage: ONCE DAILY
     Route: 048
     Dates: end: 20200108

REACTIONS (2)
  - Paraesthesia [Not Recovered/Not Resolved]
  - Restlessness [Recovered/Resolved]
